FAERS Safety Report 7723690-4 (Version None)
Quarter: 2011Q3

REPORT INFORMATION
  Report Type: 
  Country: None (occurrence: None)
  Receive Date: 20110826
  Receipt Date: 20110816
  Transmission Date: 20111222
  Serious: Yes (Hospitalization, Other)
  Sender: FDA-Public Use
  Company Number: ACO_26277_2011

PATIENT
  Age: 56 Year
  Sex: Female
  Weight: 93.4 kg

DRUGS (10)
  1. OMEGA 3 /06852001/ (DOCOSAHEXAENOIC ACID, EICOSAPENTAENOIC ACID) [Concomitant]
  2. COPAXONE [Concomitant]
  3. QUINARETIC (HYDROCHLOROTHIAZIDE, QUINAPRIL HYDROCHLORIDE) [Concomitant]
  4. NEXIUM [Concomitant]
  5. CLONAZEPAM [Concomitant]
  6. TOPROL-XL [Concomitant]
  7. VYTORIN [Concomitant]
  8. CALCIUM + VITAMIN D /01483701/ (CALCIUM, COLECALCIFEROL) [Concomitant]
  9. AMPYRA [Suspect]
     Indication: GAIT DISTURBANCE
     Dosage: 10 MG, BID, ORAL
     Route: 048
     Dates: start: 20100101, end: 20110718
  10. MULTIVITAMIN /00831701/ (VITAMINS NOS) [Concomitant]

REACTIONS (1)
  - ANAPHYLACTIC SHOCK [None]
